FAERS Safety Report 9669467 (Version 2)
Quarter: 2013Q4

REPORT INFORMATION
  Report Type: Spontaneous
  Country: FR (occurrence: FR)
  Receive Date: 20131105
  Receipt Date: 20131210
  Transmission Date: 20140711
  Serious: Yes (Hospitalization, Other)
  Sender: FDA-Public Use
  Company Number: FR-PFIZER INC-2013310925

PATIENT
  Age: 70 Year
  Sex: Male

DRUGS (4)
  1. SUTENT [Suspect]
     Indication: RENAL CELL CARCINOMA
     Dosage: 50 MG, CYCLIC, 28 DAYS ON AND 14 DAYS OFF
     Route: 048
     Dates: start: 20110627
  2. KERLONE [Concomitant]
     Indication: ATRIAL FIBRILLATION
     Dosage: 20 MG, UNK
  3. KARDEGIC [Concomitant]
     Indication: ATRIAL FIBRILLATION
     Dosage: 75 MG, UNK
     Dates: end: 201308
  4. CRESTOR [Concomitant]
     Indication: ATRIAL FIBRILLATION

REACTIONS (4)
  - Haemorrhagic stroke [Unknown]
  - Intracardiac thrombus [Unknown]
  - Ischaemic stroke [Unknown]
  - Blood thyroid stimulating hormone increased [Unknown]
